FAERS Safety Report 9746694 (Version 1)
Quarter: 2013Q4

REPORT INFORMATION
  Report Type: Spontaneous
  Country: JP (occurrence: JP)
  Receive Date: 20131211
  Receipt Date: 20131211
  Transmission Date: 20140711
  Serious: Yes (Hospitalization)
  Sender: FDA-Public Use
  Company Number: JP-PFIZER INC-2013347166

PATIENT
  Age: 9 Decade
  Sex: Male

DRUGS (1)
  1. HYDROCORTISONE SODIUM SUCCINATE [Suspect]
     Indication: INCISIONAL DRAINAGE
     Dosage: 1000 MG, DAILY
     Dates: start: 201005

REACTIONS (1)
  - Hepatitis B [Recovered/Resolved]
